FAERS Safety Report 24275467 (Version 1)
Quarter: 2024Q3

REPORT INFORMATION
  Report Type: Spontaneous
  Country: GB (occurrence: GB)
  Receive Date: 20240903
  Receipt Date: 20240903
  Transmission Date: 20241017
  Serious: Yes (Hospitalization, Other)
  Sender: ORGANON
  Company Number: None

PATIENT
  Age: 78 Year
  Sex: Male

DRUGS (14)
  1. ALENDRONATE SODIUM [Suspect]
     Active Substance: ALENDRONATE SODIUM
     Dosage: 07-AUG-2024 ON THE SAME DAY EACH WEEK -SATURDAY
     Dates: start: 20240807
  2. MIRTAZAPINE [Concomitant]
     Active Substance: MIRTAZAPINE
     Dosage: 27-JUN-2024**15 MG TABLETS ONE TO BE TAKEN AT NIGHT. 28 TABLET
     Dates: start: 20240627
  3. DICLOFENAC DIETHYLAMINE [Concomitant]
     Active Substance: DICLOFENAC DIETHYLAMINE
     Dosage: 21-MAY-2024**1.16% GEL APPLY THREE OR FOUR TIMES A DAY FOR 2 WEEKS 100 GRAM - USES PRN, NOT DAILY MA
     Dates: start: 20240521
  4. ISOSORBIDE MONONITRATE [Concomitant]
     Active Substance: ISOSORBIDE MONONITRATE
     Dosage: 07-AUG-2024 60 MG TABLETS ONE TO BE TAKEN EACH MORNING
     Dates: start: 20240807
  5. CALCIUM CARBONATE\CHOLECALCIFEROL [Concomitant]
     Active Substance: CALCIUM CARBONATE\CHOLECALCIFEROL
     Dosage: 07-AUG-2024 750 MG / 200 UNIT CAPLETS 2 TWICE A DAY
     Dates: start: 20240807
  6. ASPIRIN [Concomitant]
     Active Substance: ASPIRIN
     Dosage: 07-AUG-2024 75 MG DISPERSIBLE TABLETS ONE TO BE TAKEN EACH DAY IN THE MORNING
     Dates: start: 20240807
  7. ATORVASTATIN [Concomitant]
     Active Substance: ATORVASTATIN
     Dosage: 07-AUG-2024 80 MG TABLETS ONE TO BE TAKEN AT BEDTIME
     Dates: start: 20240807
  8. CIPROFLOXACIN [Concomitant]
     Active Substance: CIPROFLOXACIN
     Dosage: 250 MG TABLETS ONE TO BE TAKEN TWICE A DAY (TOTAL 750 MG BD) - STILL TAKING, WAS STEPPED DOWN TO THI
  9. NUTRIZYM [PANCREATIN] [Concomitant]
     Dosage: 07-AUG-2024GASTRO-RESISTANT CAPSULES THREE CAPSULES WITH SNACKS AND FOUR-SIX WITH MEALS - PT SAYS DE
     Dates: start: 20240807
  10. MORPHINE SULFATE [Concomitant]
     Active Substance: MORPHINE SULFATE
     Dosage: 07-AUG-2024 10 MG / 5 ML ORAL SOLUTION 2.5 MLS TO 5 MLS PRN - PT USES 5MLS PRN
     Dates: start: 20240807
  11. ACETAMINOPHEN [Concomitant]
     Active Substance: ACETAMINOPHEN
     Dosage: 07-AUG-2024 500 MG TABLETS ONE OR TWO TO BE TAKEN FOUR TIMES DAILY AS REQUIRED
     Dates: start: 20240807
  12. BUTYLSCOPOLAMINE BROMIDE [Concomitant]
     Active Substance: BUTYLSCOPOLAMINE BROMIDE
     Dosage: 09-JUL-202410 MG TABLETS TWO TO BE TAKEN FOUR TIMES A DAY AS REQUIRED FOR ABDOMINAL PAIN
     Dates: start: 20240709
  13. HYPROMELLOSES [Concomitant]
     Active Substance: HYPROMELLOSES
     Dosage: 09-JUL-2024 0.3% EYE DROPS 1-2 DROPS THREE TIMES A DAY AS REQUIRED - QDS PRN
     Dates: start: 20240709
  14. CLOBETASONE [Concomitant]
     Active Substance: CLOBETASONE
     Dosage: 11-JUL-2024 0.05% CREAM APPLY TWICE DAILY 30 GRAM - STILL USING, SAID IS RUNNING OUT AS OOS AT CHEMI
     Dates: start: 20240711

REACTIONS (1)
  - Otitis externa [Unknown]
